FAERS Safety Report 8832619 (Version 1)
Quarter: 2012Q4

REPORT INFORMATION
  Report Type: 
  Country: US (occurrence: US)
  Receive Date: 20121010
  Receipt Date: 20121010
  Transmission Date: 20130627
  Serious: No
  Sender: FDA-Public Use
  Company Number: US-PFIZER INC-2012244301

PATIENT
  Sex: Male

DRUGS (1)
  1. VIAGRA [Suspect]
     Dosage: at night
     Dates: start: 20121001

REACTIONS (3)
  - Spermatorrhoea [Unknown]
  - Erection increased [Unknown]
  - Testicular disorder [Unknown]
